FAERS Safety Report 4943770-6 (Version None)
Quarter: 2006Q1

REPORT INFORMATION
  Report Type: 
  Country: None (occurrence: None)
  Receive Date: 20060314
  Receipt Date: 20051006
  Transmission Date: 20060701
  Serious: Yes (Hospitalization)
  Sender: FDA-Public Use
  Company Number: US-MERCK-0510USA05767

PATIENT
  Age: 48 Year
  Sex: Male

DRUGS (1)
  1. VIOXX [Suspect]
     Indication: PERICARDITIS
     Route: 048
     Dates: start: 20020101, end: 20021201

REACTIONS (3)
  - ARTHROPATHY [None]
  - CHEST PAIN [None]
  - MYOCARDIAL INFARCTION [None]
